FAERS Safety Report 21724107 (Version 1)
Quarter: 2022Q4

REPORT INFORMATION
  Report Type: Spontaneous
  Country: ES (occurrence: ES)
  Receive Date: 20221213
  Receipt Date: 20221213
  Transmission Date: 20230112
  Serious: Yes (Hospitalization)
  Sender: FDA-Public Use
  Company Number: ES-HISAMITSU PHARMACEUTICAL CO., INC.-2022-NOV-ES001169

PATIENT
  Age: 37 Year
  Sex: Male

DRUGS (1)
  1. ASENAPINE [Suspect]
     Active Substance: ASENAPINE
     Indication: Schizophrenia
     Dosage: 20 MG, UNKNOWN
     Route: 065

REACTIONS (1)
  - Priapism [Recovered/Resolved]
